FAERS Safety Report 7623163-3 (Version None)
Quarter: 2011Q3

REPORT INFORMATION
  Report Type: 
  Country: None (occurrence: None)
  Receive Date: 20110720
  Receipt Date: 20110712
  Transmission Date: 20111222
  Serious: Yes (Life-Threatening, Hospitalization, Disabling, Other)
  Sender: FDA-Public Use
  Company Number: PHEH2009US01710

PATIENT
  Sex: Female
  Weight: 84.807 kg

DRUGS (19)
  1. FLUTICASONE PROPIONATE [Concomitant]
  2. CALCIUM W/VITAMIN D NOS [Concomitant]
  3. GABAPENTIN [Concomitant]
  4. FOSAMAX [Concomitant]
     Dosage: 70 MG, QW
  5. VICODIN [Concomitant]
  6. MULTIVITAMINS, COMBINATIONS [Concomitant]
  7. KETOPROFEN [Concomitant]
  8. RECLAST [Suspect]
     Indication: OSTEOPOROSIS
     Dosage: 5 MG, ONCE/SINGLE
     Dates: start: 20080918, end: 20080918
  9. LIDODERM [Concomitant]
     Indication: PAIN
     Route: 062
  10. DUONEB [Concomitant]
  11. PLO [Concomitant]
  12. SINGULAIR [Concomitant]
     Dosage: 10 MG, QD
  13. OMEPRAZOLE [Concomitant]
     Dosage: 20 MG, QD
  14. LIDOCAINE [Concomitant]
  15. WARFARIN SODIUM [Concomitant]
     Dosage: 2 MG, (TAKES 2 MG ON MONDAY, 4 MG ON TUESDAY, 2 MG ON WEDNESDAY, 4 MG FROM THURSDAY TO SATURDAY)
  16. RANITIDINE [Concomitant]
  17. ADVAIR DISKUS 100/50 [Concomitant]
  18. KLONOPIN [Concomitant]
     Indication: MUSCLE SPASMS
     Dosage: 1 DF, QHS
  19. CLONAZEPAM [Concomitant]

REACTIONS (14)
  - FALL [None]
  - GASTROOESOPHAGEAL REFLUX DISEASE [None]
  - MUSCLE SPASMS [None]
  - THROMBOSIS [None]
  - ARTHRALGIA [None]
  - QUALITY OF LIFE DECREASED [None]
  - ABASIA [None]
  - MYALGIA [None]
  - PAIN [None]
  - ASTHMA [None]
  - FIBROMYALGIA [None]
  - BALANCE DISORDER [None]
  - CONDITION AGGRAVATED [None]
  - INFLUENZA LIKE ILLNESS [None]
